FAERS Safety Report 13807530 (Version 1)
Quarter: 2017Q3

REPORT INFORMATION
  Report Type: Report from Study
  Country: GB (occurrence: GB)
  Receive Date: 20170728
  Receipt Date: 20170728
  Transmission Date: 20171127
  Serious: Yes (Hospitalization, Other)
  Sender: FDA-Public Use
  Company Number: GB-SA-2017SA135873

PATIENT
  Age: 40 Year
  Sex: Male

DRUGS (1)
  1. LEMTRADA [Suspect]
     Active Substance: ALEMTUZUMAB
     Indication: MULTIPLE SCLEROSIS
     Route: 041
     Dates: start: 20170703, end: 20170707

REACTIONS (5)
  - Fatigue [Unknown]
  - Hemiparesis [Unknown]
  - Peripheral swelling [Not Recovered/Not Resolved]
  - Muscular weakness [Unknown]
  - Asthenia [Unknown]

NARRATIVE: CASE EVENT DATE: 201707
